FAERS Safety Report 14088463 (Version 2)
Quarter: 2017Q4

REPORT INFORMATION
  Report Type: Spontaneous
  Country: US (occurrence: US)
  Receive Date: 20171013
  Receipt Date: 20171023
  Transmission Date: 20180321
  Serious: No
  Sender: FDA-Public Use
  Company Number: US-ACTELION-A-NJ2017-160945

PATIENT
  Age: 43 Year
  Sex: Female
  Weight: 92.52 kg

DRUGS (2)
  1. VELETRI [Suspect]
     Active Substance: EPOPROSTENOL
     Indication: PULMONARY ARTERIAL HYPERTENSION
     Dosage: 40 NG/KG, PER MIN
     Route: 042
  2. WARFARIN [Concomitant]
     Active Substance: WARFARIN

REACTIONS (5)
  - Catheter site pruritus [Unknown]
  - Swelling [Unknown]
  - Neck pain [Unknown]
  - Weight decreased [Unknown]
  - Catheter site erythema [Unknown]

NARRATIVE: CASE EVENT DATE: 201710
